FAERS Safety Report 4885750-5 (Version None)
Quarter: 2006Q1

REPORT INFORMATION
  Report Type: 
  Country: None (occurrence: None)
  Receive Date: 20060117
  Receipt Date: 20060102
  Transmission Date: 20060701
  Serious: Yes (Death, Life-Threatening)
  Sender: FDA-Public Use
  Company Number: WAES 0601USA00131

PATIENT
  Age: 44 Year
  Sex: Female

DRUGS (5)
  1. CANCIDAS [Suspect]
     Indication: FEBRILE NEUTROPENIA
     Dosage: 70 MG/1X, 50MG/1X
     Route: 042
     Dates: start: 20051223, end: 20051223
  2. AMIKACIN SULFATE [Concomitant]
  3. CLOTRIMAZOLE [Concomitant]
  4. MEROPENEM [Concomitant]
  5. TEICOPLANIN [Concomitant]

REACTIONS (4)
  - CARDIO-RESPIRATORY ARREST [None]
  - DYSPNOEA [None]
  - HEADACHE [None]
  - PAIN IN JAW [None]
